FAERS Safety Report 22078375 (Version 2)
Quarter: 2023Q2

REPORT INFORMATION
  Report Type: Report from Study
  Country: US (occurrence: US)
  Receive Date: 20230309
  Receipt Date: 20230614
  Transmission Date: 20230721
  Serious: Yes (Congenital Anomaly, Other)
  Sender: FDA-Public Use
  Company Number: US-PREGISTRY-2023-US-00036

PATIENT

DRUGS (2)
  1. SOTROVIMAB [Suspect]
     Active Substance: SOTROVIMAB
     Indication: COVID-19
     Dosage: UNK
     Route: 064
     Dates: start: 20220228, end: 20220228
  2. DOCONEXENT\MINERALS\VITAMINS [Suspect]
     Active Substance: DOCONEXENT\MINERALS\VITAMINS
     Indication: Product used for unknown indication
     Dosage: UNK UNK, QD PRENATAL
     Route: 064
     Dates: start: 20211202

REACTIONS (4)
  - Congenital hydronephrosis [Unknown]
  - Breech presentation [Recovered/Resolved]
  - COVID-19 [Recovered/Resolved]
  - Foetal exposure during pregnancy [Recovered/Resolved]

NARRATIVE: CASE EVENT DATE: 20220228
